FAERS Safety Report 17221320 (Version 1)
Quarter: 2019Q4

REPORT INFORMATION
  Report Type: Report from Study
  Country: None (occurrence: US)
  Receive Date: 20191231
  Receipt Date: 20191231
  Transmission Date: 20200122
  Serious: Yes (Hospitalization, Other)
  Sender: FDA-Public Use
  Company Number: US-ABBVIE-19K-163-3002214-00

PATIENT
  Sex: Male

DRUGS (5)
  1. PREDNISONE. [Concomitant]
     Active Substance: PREDNISONE
     Indication: RHEUMATOID ARTHRITIS
  2. HUMIRA [Suspect]
     Active Substance: ADALIMUMAB
     Route: 058
     Dates: start: 2019, end: 201911
  3. HUMIRA [Suspect]
     Active Substance: ADALIMUMAB
     Route: 058
     Dates: start: 201912
  4. HUMIRA [Suspect]
     Active Substance: ADALIMUMAB
     Indication: RHEUMATOID ARTHRITIS
     Route: 058
     Dates: end: 2019
  5. LOSARTAN. [Concomitant]
     Active Substance: LOSARTAN
     Indication: HYPERTENSION

REACTIONS (14)
  - Colectomy [Unknown]
  - Dehydration [Recovered/Resolved]
  - Arthralgia [Unknown]
  - Abdominal hernia [Recovered/Resolved]
  - Thrombosis [Unknown]
  - Surgery [Unknown]
  - Gastric ulcer [Unknown]
  - Intervertebral disc disorder [Unknown]
  - Wound dehiscence [Unknown]
  - Pain in extremity [Unknown]
  - Diverticulitis [Unknown]
  - Hospitalisation [Unknown]
  - Gastric disorder [Unknown]
  - Vomiting [Recovered/Resolved]

NARRATIVE: CASE EVENT DATE: 2017
